FAERS Safety Report 4748215-7 (Version None)
Quarter: 2005Q3

REPORT INFORMATION
  Report Type: 
  Country: None (occurrence: None)
  Receive Date: 20050818
  Receipt Date: 20050809
  Transmission Date: 20060218
  Serious: Yes (Hospitalization)
  Sender: FDA-Public Use
  Company Number: PHBS2005BR11825

PATIENT
  Age: 82 Year
  Sex: Male

DRUGS (10)
  1. STARFORM [Suspect]
     Indication: HYPERGLYCAEMIA
     Dosage: 1 TABLET, TID
     Route: 048
     Dates: end: 20050809
  2. STARFORM [Suspect]
     Dosage: 1 TABLET, BID
     Route: 048
  3. STARFORM [Suspect]
     Dosage: 1 TABLET, QD
  4. VINPOCETINE [Concomitant]
     Dates: start: 20050809, end: 20050811
  5. CYANOCOBALAMIN W/PYRIDOXINE [Concomitant]
     Dosage: 1 TABLET QD
     Route: 048
     Dates: start: 20050809, end: 20050811
  6. SUPRADYN /ARG/ [Concomitant]
     Dates: end: 20050811
  7. RANITIDINE HCL [Concomitant]
     Dosage: 150MG, UNK
     Route: 048
     Dates: end: 20050811
  8. DIOSMIN [Concomitant]
     Dosage: 450MG
     Route: 048
     Dates: end: 20050811
  9. PROLOPA [Concomitant]
     Indication: PARKINSON'S DISEASE
     Dosage: UNK, UNK
     Route: 048
     Dates: end: 20050811
  10. CLORANA [Concomitant]
     Dates: end: 20050809

REACTIONS (7)
  - BLOOD CREATININE INCREASED [None]
  - BLOOD POTASSIUM INCREASED [None]
  - BLOOD UREA INCREASED [None]
  - BLOOD URIC ACID INCREASED [None]
  - DIARRHOEA [None]
  - HAEMODIALYSIS [None]
  - HYPOGLYCAEMIA [None]
